FAERS Safety Report 12746361 (Version 1)
Quarter: 2016Q3

REPORT INFORMATION
  Report Type: Spontaneous
  Country: US (occurrence: US)
  Receive Date: 20160915
  Receipt Date: 20160915
  Transmission Date: 20161109
  Serious: No
  Sender: FDA-Public Use
  Company Number: US-PFIZER INC-2016431660

PATIENT
  Age: 28 Year
  Sex: Male
  Weight: 61.69 kg

DRUGS (1)
  1. LYRICA [Suspect]
     Active Substance: PREGABALIN

REACTIONS (7)
  - Dehydration [Unknown]
  - Withdrawal syndrome [Unknown]
  - Chills [Unknown]
  - Vomiting [Unknown]
  - Drug ineffective [Unknown]
  - Hypersensitivity [Unknown]
  - Feeling jittery [Unknown]
